FAERS Safety Report 26073106 (Version 1)
Quarter: 2025Q4

REPORT INFORMATION
  Report Type: Spontaneous
  Country: EU (occurrence: EU)
  Receive Date: 20251121
  Receipt Date: 20251121
  Transmission Date: 20260117
  Serious: Yes (Congenital Anomaly, Other)
  Sender: ACCORD
  Company Number: None

PATIENT
  Sex: Female
  Weight: 1.227 kg

DRUGS (7)
  1. LEVETIRACETAM [Suspect]
     Active Substance: LEVETIRACETAM
  2. IRBESARTAN [Suspect]
     Active Substance: IRBESARTAN
     Dates: start: 20230710, end: 20250902
  3. BISOPROLOL FUMARATE [Suspect]
     Active Substance: BISOPROLOL FUMARATE
  4. HYDROXYUREA [Suspect]
     Active Substance: HYDROXYUREA
     Dates: start: 20230804, end: 20250903
  5. XARELTO [Suspect]
     Active Substance: RIVAROXABAN
     Dosage: STRENGTH: 20 MG
     Dates: start: 20241031, end: 20250902
  6. DAPAGLIFLOZIN [Suspect]
     Active Substance: DAPAGLIFLOZIN
     Dosage: STRENGTH: 10 MG
     Dates: start: 20230710, end: 20250903
  7. LANSOPRAZOLE [Suspect]
     Active Substance: LANSOPRAZOLE

REACTIONS (4)
  - Trisomy 21 [Not Recovered/Not Resolved]
  - Foetal growth restriction [Not Recovered/Not Resolved]
  - Premature baby [Not Recovered/Not Resolved]
  - Foetal exposure during pregnancy [Recovered/Resolved]

NARRATIVE: CASE EVENT DATE: 20250227
